FAERS Safety Report 9030654 (Version 1)
Quarter: 2013Q1

REPORT INFORMATION
  Report Type: Spontaneous
  Country: GB (occurrence: GB)
  Receive Date: 20130123
  Receipt Date: 20130123
  Transmission Date: 20140127
  Serious: Yes (Hospitalization)
  Sender: FDA-Public Use
  Company Number: GB-ASTRAZENECA-2013SE03275

PATIENT
  Age: 90 Year
  Sex: Male
  Weight: 66 kg

DRUGS (11)
  1. ZOLADEX LA [Suspect]
     Indication: PROSTATE CANCER
     Route: 058
  2. ZOLADEX LA [Suspect]
     Indication: PROSTATE CANCER
     Route: 058
     Dates: start: 201009
  3. DIGOXIN [Concomitant]
     Indication: ATRIAL FIBRILLATION
     Route: 048
     Dates: start: 2008
  4. DIGOXIN [Concomitant]
     Indication: HYPERTENSION
     Route: 048
     Dates: start: 2008
  5. FUROSEMIDE [Concomitant]
     Indication: HYPERTENSION
     Route: 048
  6. RISEDRONATE [Concomitant]
     Indication: OSTEITIS DEFORMANS
     Route: 048
     Dates: start: 2008
  7. SERTRALINE [Concomitant]
     Indication: DEPRESSION
     Route: 048
     Dates: start: 2010
  8. TAMSULOSIN [Concomitant]
     Indication: PROSTATE CANCER
     Route: 048
  9. CANDESARTAN [Concomitant]
     Indication: HYPERTENSION
     Route: 048
     Dates: start: 2010
  10. ALLOPURINOL [Concomitant]
     Indication: GOUT
     Route: 048
     Dates: start: 2009
  11. CLOPIDOGREL [Concomitant]

REACTIONS (6)
  - Arterial injury [Unknown]
  - Abdominal pain [Unknown]
  - Abdominal wall haematoma [Unknown]
  - Haemorrhage [Unknown]
  - Injection site extravasation [Unknown]
  - Wrong technique in drug usage process [Unknown]
